FAERS Safety Report 10369405 (Version 1)
Quarter: 2014Q1

REPORT INFORMATION
  Report Type: Spontaneous
  Country: US (occurrence: None)
  Receive Date: 20140306
  Receipt Date: 20140306
  Transmission Date: 20141002
  Serious: Yes (Hospitalization)
  Sender: FDA-Public Use
  Company Number: 163-21880-13091341

PATIENT
  Age: 81 Year
  Sex: Male
  Weight: 91.3 kg

DRUGS (20)
  1. REVLIMID [Suspect]
     Indication: PLASMA CELL MYELOMA
     Dosage: 10 MG, 21 IN 28 D, PO
     Route: 048
     Dates: start: 20130318, end: 20130825
  2. MLN9708/PLACEBO (UNKNOWN) [Suspect]
     Indication: PLASMA CELL MYELOMA
     Dosage: 4 MG, 3 IN 28 D, PO
     Route: 048
     Dates: start: 20130318, end: 20130819
  3. CLONAZEPAM [Suspect]
     Indication: PRODUCT USED FOR UNKNOWN INDICATION
     Route: 048
     Dates: start: 20130729, end: 20130827
  4. DEXAMETHASONE (DEXAMETHASONE) (TABLETS) [Concomitant]
  5. ZETIA (EZETIMIBE) [Concomitant]
  6. TRICOR (FENOFIBRATE) [Concomitant]
  7. UROXATRAL (ALFUZOSIN HYDROCHLORIDE) [Concomitant]
  8. CRESTOR (ROSUVASTATIN) [Concomitant]
  9. PRILOSEC (OMEPRAZOLE) [Concomitant]
  10. COUMADIN (WARFARIN SODIUM) [Concomitant]
  11. AMOXICILLIN (AMOXICILLIN) [Concomitant]
  12. COLACE (DOCUSATE SODIUM) [Concomitant]
  13. METOPROLOL TARTRATE (METOPROLOL TARTRATE) [Concomitant]
  14. NIASPAN (NICOTINIC ACID) [Concomitant]
  15. SENNA (SENNA) [Concomitant]
  16. PROCHLORPERAZINE (PROCHLORPERAZINE) [Concomitant]
  17. DURAGESIC (FENTANYL) [Concomitant]
  18. AREDIA (PAMIDRONATE DISODIUM) [Concomitant]
  19. ENOXAPARIN (ENOXAPARIN) [Concomitant]
  20. LOVENOX (HEPARIN-FRACTION, SODIUM SALT) [Concomitant]

REACTIONS (1)
  - Confusional state [None]
